FAERS Safety Report 7530151-4 (Version None)
Quarter: 2011Q2

REPORT INFORMATION
  Report Type: 
  Country: None (occurrence: None)
  Receive Date: 20110606
  Receipt Date: 20110606
  Transmission Date: 20111010
  Serious: Yes (Hospitalization, Other)
  Sender: FDA-Public Use
  Company Number: None

PATIENT
  Age: 56 Year
  Sex: Female
  Weight: 63.5036 kg

DRUGS (2)
  1. CYMBALTA [Concomitant]
  2. SAVELLA [Suspect]
     Indication: FIBROMYALGIA
     Dosage: BY MOUTH
     Route: 048
     Dates: start: 20100801

REACTIONS (3)
  - AGITATION [None]
  - ANXIETY [None]
  - FEELING ABNORMAL [None]
